FAERS Safety Report 4951057-0 (Version None)
Quarter: 2006Q1

REPORT INFORMATION
  Report Type: 
  Country: None (occurrence: None)
  Receive Date: 20060322
  Receipt Date: 20060215
  Transmission Date: 20060701
  Serious: Yes (Hospitalization, Other)
  Sender: FDA-Public Use
  Company Number: US-MERCK-0602USA04467

PATIENT
  Age: 70 Year
  Sex: Male
  Weight: 114 kg

DRUGS (9)
  1. VIOXX [Suspect]
     Indication: ARTHRITIS
     Route: 048
     Dates: start: 20000317, end: 20031101
  2. ASPIRIN [Concomitant]
     Route: 048
  3. LOPRESSOR [Concomitant]
     Route: 048
  4. TRICOR [Concomitant]
     Route: 048
  5. PLAVIX [Concomitant]
     Route: 048
  6. NITROGLYCERIN [Concomitant]
     Route: 060
  7. GLUCOPHAGE [Concomitant]
     Route: 048
  8. SYNTHROID [Concomitant]
     Indication: HYPOTHYROIDISM
     Route: 048
  9. VITAMINS (UNSPECIFIED) [Concomitant]
     Route: 048

REACTIONS (18)
  - ALANINE AMINOTRANSFERASE INCREASED [None]
  - ANGINA UNSTABLE [None]
  - ARTHROPATHY [None]
  - ATRIAL FIBRILLATION [None]
  - ATRIAL FLUTTER [None]
  - BLOOD GLUCOSE INCREASED [None]
  - BLOOD TRIGLYCERIDES INCREASED [None]
  - BUNDLE BRANCH BLOCK RIGHT [None]
  - CARDIAC DISORDER [None]
  - CHEST PAIN [None]
  - CORONARY ARTERY OCCLUSION [None]
  - CORONARY ARTERY STENOSIS [None]
  - HAEMOGLOBIN DECREASED [None]
  - HEART RATE INCREASED [None]
  - ISCHAEMIC CARDIOMYOPATHY [None]
  - MYOCARDIAL INFARCTION [None]
  - PALPITATIONS [None]
  - VENTRICULAR ARRHYTHMIA [None]
